FAERS Safety Report 25892812 (Version 1)
Quarter: 2025Q4

REPORT INFORMATION
  Report Type: Spontaneous
  Country: IN (occurrence: IN)
  Receive Date: 20251007
  Receipt Date: 20251007
  Transmission Date: 20260118
  Serious: Yes (Other)
  Sender: BLUEPRINT MEDICINES
  Company Number: IN-Blueprint Medicines Corporation-2025-AER-02157

PATIENT
  Age: 19 Year
  Sex: Male

DRUGS (1)
  1. AYVAKIT [Suspect]
     Active Substance: AVAPRITINIB
     Indication: Gastrointestinal stromal tumour
     Route: 065

REACTIONS (3)
  - Disease progression [Unknown]
  - Skin toxicity [Unknown]
  - Hypertransaminasaemia [Unknown]
